FAERS Safety Report 4287973-5 (Version None)
Quarter: 2004Q1

REPORT INFORMATION
  Report Type: 
  Country: None (occurrence: None)
  Receive Date: 20040205
  Receipt Date: 20040109
  Transmission Date: 20041129
  Serious: Yes (Life-Threatening, Hospitalization)
  Sender: FDA-Public Use
  Company Number: MEDI-0001268 (0)

PATIENT
  Sex: Female

DRUGS (9)
  1. ETHYOL [Suspect]
     Indication: RADIOTHERAPY
     Dosage: 500 MG, SUBCUTANEOUS
     Route: 058
     Dates: start: 20031202, end: 20031209
  2. ETHYOL [Suspect]
     Indication: RADIOTHERAPY
     Dosage: 500 MG, SUBCUTANEOUS
     Route: 058
     Dates: end: 20031212
  3. OMEPRAZOLE [Concomitant]
  4. HYDROCORTISONE [Concomitant]
  5. CISPLATIN [Concomitant]
  6. ETOPOSIDE [Concomitant]
  7. POTASSIUM CHLORIDE [Concomitant]
  8. CACIT (CITRIC ACID, CALCIUM CARBONATE) [Concomitant]
  9. RADIATION [Concomitant]

REACTIONS (3)
  - DIARRHOEA [None]
  - HYPOTENSION [None]
  - PYREXIA [None]
